FAERS Safety Report 6199034-9 (Version None)
Quarter: 2009Q2

REPORT INFORMATION
  Report Type: 
  Country: None (occurrence: None)
  Receive Date: 20090519
  Receipt Date: 20090519
  Transmission Date: 20091009
  Serious: Yes (Death)
  Sender: FDA-Public Use
  Company Number: None

PATIENT
  Age: 57 Year
  Sex: Male
  Weight: 88.4514 kg

DRUGS (2)
  1. CELEBREX [Suspect]
     Indication: ARTHRITIS
     Dosage: 200 MG ONE PER DAY PO
     Route: 048
     Dates: start: 20090418, end: 20090505
  2. CELEBREX [Suspect]
     Indication: JOINT SWELLING
     Dosage: 200 MG ONE PER DAY PO
     Route: 048
     Dates: start: 20090418, end: 20090505

REACTIONS (3)
  - CARDIO-RESPIRATORY ARREST [None]
  - COUGH [None]
  - SUDDEN DEATH [None]
